FAERS Safety Report 7936725-0 (Version None)
Quarter: 2011Q4

REPORT INFORMATION
  Report Type: 
  Country: None (occurrence: None)
  Receive Date: 20111123
  Receipt Date: 20111121
  Transmission Date: 20120403
  Serious: Yes (Death, Hospitalization)
  Sender: FDA-Public Use
  Company Number: RO-ABBOTT-11P-135-0869871-00

PATIENT
  Sex: Female
  Weight: 80 kg

DRUGS (1)
  1. HUMIRA [Suspect]
     Indication: RHEUMATOID ARTHRITIS
     Route: 058
     Dates: start: 20110601, end: 20110901

REACTIONS (11)
  - DECREASED APPETITE [None]
  - PYREXIA [None]
  - ASTHENIA [None]
  - MYOCARDIAL INFARCTION [None]
  - CARDIO-RESPIRATORY ARREST [None]
  - NORMOCHROMIC NORMOCYTIC ANAEMIA [None]
  - BRONCHOPNEUMONIA [None]
  - CHILLS [None]
  - STAPHYLOCOCCAL SEPSIS [None]
  - PULMONARY TUBERCULOSIS [None]
  - CYTOLYTIC HEPATITIS [None]
